FAERS Safety Report 19753705 (Version 1)
Quarter: 2021Q3

REPORT INFORMATION
  Report Type: Spontaneous
  Country: US (occurrence: US)
  Receive Date: 20210826
  Receipt Date: 20210826
  Transmission Date: 20211014
  Serious: Yes (Other)
  Sender: FDA-Public Use
  Company Number: None

PATIENT
  Age: 67 Year
  Sex: Female
  Weight: 53.55 kg

DRUGS (5)
  1. COENZYME Q10 [Concomitant]
     Active Substance: DIETARY SUPPLEMENT\UBIDECARENONE
  2. CALCIUM SUPPLEMENT [Concomitant]
     Active Substance: CALCIUM
  3. VITAMIN D [Concomitant]
     Active Substance: VITAMIN D NOS
  4. PROLIA [Suspect]
     Active Substance: DENOSUMAB
     Indication: OSTEOPOROSIS
     Dosage: ?          OTHER FREQUENCY:6 MONTHS;?
     Route: 058
     Dates: start: 20190415, end: 20191116
  5. ATORVASTATIN [Concomitant]
     Active Substance: ATORVASTATIN

REACTIONS (10)
  - Dermatitis atopic [None]
  - Swelling [None]
  - Rash erythematous [None]
  - Blister [None]
  - Fatigue [None]
  - Pruritus [None]
  - Ocular hyperaemia [None]
  - Quality of life decreased [None]
  - Drug ineffective [None]
  - Unevaluable event [None]

NARRATIVE: CASE EVENT DATE: 20190615
